FAERS Safety Report 5521225-8 (Version None)
Quarter: 2007Q4

REPORT INFORMATION
  Report Type: 
  Country: None (occurrence: None)
  Receive Date: 20071119
  Receipt Date: 20071109
  Transmission Date: 20080405
  Serious: Yes (Disabling)
  Sender: FDA-Public Use
  Company Number: TR-ASTRAZENECA-2007SE05682

PATIENT
  Age: 69 Year
  Sex: Female

DRUGS (1)
  1. SEROQUEL [Suspect]
     Indication: PSYCHOTIC DISORDER
     Route: 048
     Dates: start: 20071015, end: 20071018

REACTIONS (1)
  - CARDIAC FAILURE [None]
